FAERS Safety Report 25597285 (Version 1)
Quarter: 2025Q3

REPORT INFORMATION
  Report Type: Spontaneous
  Country: US (occurrence: US)
  Receive Date: 20250723
  Receipt Date: 20250723
  Transmission Date: 20251021
  Serious: Yes (Disabling)
  Sender: VERTEX
  Company Number: US-VERTEX PHARMACEUTICALS-2025-011975

PATIENT
  Sex: Male

DRUGS (3)
  1. TRIKAFTA [Suspect]
     Active Substance: ELEXACAFTOR\IVACAFTOR\TEZACAFTOR
     Indication: Cystic fibrosis
     Dosage: 1 ORANGE PACKET BY MOUTH IN THE MORNING AND 1 PINK PACKET IN THE EVENING
     Route: 048
     Dates: start: 20241121
  2. AZTREONAM LYSINE [Suspect]
     Active Substance: AZTREONAM LYSINE
     Indication: Cystic fibrosis
     Dosage: 3 TIMES A DAY FOR 28 DAYS ON AND 28 DAYS OFF
     Dates: start: 20221028
  3. AZTREONAM LYSINE [Suspect]
     Active Substance: AZTREONAM LYSINE
     Indication: Bacterial disease carrier

REACTIONS (1)
  - Emotional disorder [Not Recovered/Not Resolved]

NARRATIVE: CASE EVENT DATE: 20250101
